FAERS Safety Report 8615992-4 (Version None)
Quarter: 2012Q3

REPORT INFORMATION
  Report Type: 
  Country: None (occurrence: None)
  Receive Date: 20120823
  Receipt Date: 20120813
  Transmission Date: 20120928
  Serious: Yes (Other)
  Sender: FDA-Public Use
  Company Number: TW-ROCHE-1103002

PATIENT
  Age: 33 Year
  Sex: Male

DRUGS (1)
  1. PEGASYS [Suspect]
     Indication: HEPATITIS B
     Route: 058
     Dates: start: 20071001

REACTIONS (2)
  - NEPHROTIC SYNDROME [None]
  - GLOMERULONEPHRITIS MEMBRANOUS [None]
